FAERS Safety Report 8191934-3 (Version None)
Quarter: 2012Q1

REPORT INFORMATION
  Report Type: 
  Country: None (occurrence: None)
  Receive Date: 20120307
  Receipt Date: 20120301
  Transmission Date: 20120608
  Serious: Yes (Other)
  Sender: FDA-Public Use
  Company Number: PHFR2012GB001494

PATIENT

DRUGS (1)
  1. ZOMETA [Suspect]
     Dosage: UNK UKN, UNK

REACTIONS (4)
  - NEOPLASM PROGRESSION [None]
  - CARDIAC SARCOIDOSIS [None]
  - OSTEONECROSIS OF JAW [None]
  - NEOPLASM MALIGNANT [None]
